FAERS Safety Report 25737018 (Version 1)
Quarter: 2025Q3

REPORT INFORMATION
  Report Type: Spontaneous
  Country: EU (occurrence: EU)
  Receive Date: 20250828
  Receipt Date: 20250828
  Transmission Date: 20251021
  Serious: Yes (Death, Hospitalization)
  Sender: EMD SERONO INC
  Company Number: EU-Merck Healthcare KGaA-2025043194

PATIENT
  Age: 52 Year
  Sex: Male

DRUGS (1)
  1. MAVENCLAD [Suspect]
     Active Substance: CLADRIBINE
     Indication: Multiple sclerosis

REACTIONS (3)
  - Sepsis [Fatal]
  - Multiple sclerosis relapse [Unknown]
  - Cerebrovascular accident [Unknown]
